FAERS Safety Report 4632769-5 (Version None)
Quarter: 2005Q2

REPORT INFORMATION
  Report Type: 
  Country: None (occurrence: None)
  Receive Date: 20050412
  Receipt Date: 20040112
  Transmission Date: 20051028
  Serious: Yes (Hospitalization, Disabling)
  Sender: FDA-Public Use
  Company Number: US-NOVOPROD-234781

PATIENT
  Age: 11 Year
  Sex: Male
  Weight: 33 kg

DRUGS (4)
  1. NORDITROPIN SIMPLEXX 10 MG/ML [Suspect]
     Indication: GROWTH HORMONE DEFICIENCY
     Dosage: 1 MG, QD
     Route: 058
     Dates: start: 20020404, end: 20040105
  2. NORDITROPIN SIMPLEXX 10 MG/ML [Suspect]
     Dosage: 1 MG, QD
     Route: 058
     Dates: start: 20040109
  3. STRATTERA [Concomitant]
     Indication: ATTENTION DEFICIT/HYPERACTIVITY DISORDER
     Dosage: 40 MG, QD
     Route: 048
     Dates: start: 20030809, end: 20040106
  4. IBUPROFEN [Concomitant]
     Dosage: 2 CAPS, PRN
     Route: 048
     Dates: start: 20030809, end: 20040105

REACTIONS (1)
  - OSTEOCHONDROSIS [None]
